FAERS Safety Report 4776958-8 (Version None)
Quarter: 2005Q3

REPORT INFORMATION
  Report Type: 
  Country: None (occurrence: None)
  Receive Date: 20050921
  Receipt Date: 20050902
  Transmission Date: 20060218
  Serious: Yes (Death, Hospitalization)
  Sender: FDA-Public Use
  Company Number: USA040772255

PATIENT
  Age: 60 Year
  Sex: Female
  Weight: 61 kg

DRUGS (10)
  1. FORTEO [Suspect]
     Indication: OSTEOPOROSIS
     Dosage: 20 UG DAY
     Dates: start: 20040701
  2. PREDNISONE [Concomitant]
  3. CALCIUM GLUCONATE [Concomitant]
  4. COLAZAL (BALSALAZIDE SODIUM) [Concomitant]
  5. PERCOCET [Concomitant]
  6. ZOLOFT [Concomitant]
  7. THEOPHYLLINE [Concomitant]
  8. AMARYL [Concomitant]
  9. DURAGESIC-100 [Concomitant]
  10. PROTONIX [Concomitant]

REACTIONS (12)
  - BACK PAIN [None]
  - CHRONIC OBSTRUCTIVE PULMONARY DISEASE [None]
  - CONDITION AGGRAVATED [None]
  - DYSPNOEA [None]
  - EMPHYSEMA [None]
  - FLUID RETENTION [None]
  - HAEMATURIA [None]
  - MEDICATION ERROR [None]
  - OEDEMA PERIPHERAL [None]
  - OVERDOSE [None]
  - PAIN [None]
  - SPINAL COMPRESSION FRACTURE [None]
